FAERS Safety Report 8121027-2 (Version None)
Quarter: 2012Q1

REPORT INFORMATION
  Report Type: 
  Country: None (occurrence: None)
  Receive Date: 20120208
  Receipt Date: 20120124
  Transmission Date: 20120608
  Serious: Yes (Other)
  Sender: FDA-Public Use
  Company Number: JP-MEDIMMUNE-MEDI-0014666

PATIENT
  Sex: Female
  Weight: 9.9 kg

DRUGS (2)
  1. SYNAGIS [Suspect]
     Route: 030
     Dates: start: 20111219, end: 20111219
  2. SYNAGIS [Suspect]
     Route: 030
     Dates: start: 20120116, end: 20120116

REACTIONS (6)
  - ALTERED STATE OF CONSCIOUSNESS [None]
  - FLUSHING [None]
  - RESPIRATION ABNORMAL [None]
  - CYANOSIS [None]
  - CONVULSION [None]
  - DEPRESSED LEVEL OF CONSCIOUSNESS [None]
